FAERS Safety Report 4475778-1 (Version None)
Quarter: 2004Q3

REPORT INFORMATION
  Report Type: 
  Country: None (occurrence: None)
  Receive Date: 20040928
  Receipt Date: 20040809
  Transmission Date: 20050211
  Serious: No
  Sender: FDA-Public Use
  Company Number: USA040772081

PATIENT
  Age: 63 Year
  Sex: Female
  Weight: 59 kg

DRUGS (3)
  1. FORTEO [Suspect]
     Indication: OSTEOPOROSIS
     Dates: start: 20040706
  2. LEVOXYL [Concomitant]
  3. MULTIVITAMIN [Concomitant]

REACTIONS (3)
  - HAEMORRHAGE [None]
  - INJECTION SITE ERYTHEMA [None]
  - INJECTION SITE HAEMORRHAGE [None]
